FAERS Safety Report 6033375-0 (Version None)
Quarter: 2009Q1

REPORT INFORMATION
  Report Type: 
  Country: None (occurrence: None)
  Receive Date: 20090109
  Receipt Date: 20081226
  Transmission Date: 20090719
  Serious: Yes (Other)
  Sender: FDA-Public Use
  Company Number: JP-GENENTECH-259899

PATIENT
  Sex: Female

DRUGS (1)
  1. AVASTIN [Suspect]
     Indication: DIABETIC RETINOPATHY
     Dosage: 1 MG, QD
     Route: 031
     Dates: start: 20071111

REACTIONS (1)
  - RETINAL VASCULAR DISORDER [None]
